FAERS Safety Report 13911468 (Version 1)
Quarter: 2017Q3

REPORT INFORMATION
  Report Type: Spontaneous
  Country: US (occurrence: US)
  Receive Date: 20170828
  Receipt Date: 20170828
  Transmission Date: 20171127
  Serious: No
  Sender: FDA-Public Use
  Company Number: US-ROCHE-1141399

PATIENT
  Sex: Female
  Weight: 68 kg

DRUGS (2)
  1. TYLENOL [Concomitant]
     Active Substance: ACETAMINOPHEN
  2. NUTROPIN [Suspect]
     Active Substance: SOMATROPIN
     Indication: TURNER^S SYNDROME
     Route: 065

REACTIONS (4)
  - Arthralgia [Unknown]
  - Paraesthesia [Unknown]
  - Pain [Unknown]
  - Burning sensation [Unknown]
